FAERS Safety Report 15233805 (Version 2)
Quarter: 2018Q3

REPORT INFORMATION
  Report Type: Report from Study
  Country: None (occurrence: US)
  Receive Date: 20180802
  Receipt Date: 20180829
  Transmission Date: 20181010
  Serious: Yes (Hospitalization, Other)
  Sender: FDA-Public Use
  Company Number: US-ABBVIE-18K-163-2437992-00

PATIENT
  Age: 57 Year
  Sex: Male
  Weight: 89.89 kg

DRUGS (4)
  1. VITAMIN C [Concomitant]
     Active Substance: ASCORBIC ACID
     Indication: VITAMIN SUPPLEMENTATION
  2. MAVYRET [Suspect]
     Active Substance: GLECAPREVIR\PIBRENTASVIR
     Dosage: 100/40MG
     Route: 048
     Dates: start: 20180716
  3. VITAMIN D [Concomitant]
     Active Substance: CHOLECALCIFEROL
     Indication: VITAMIN SUPPLEMENTATION
  4. MAVYRET [Suspect]
     Active Substance: GLECAPREVIR\PIBRENTASVIR
     Indication: CHRONIC HEPATITIS C
     Dosage: 100/40MG
     Route: 048
     Dates: start: 20180629, end: 20180708

REACTIONS (10)
  - Weight decreased [Recovering/Resolving]
  - Dysuria [Recovering/Resolving]
  - Diarrhoea [Recovering/Resolving]
  - Syncope [Recovered/Resolved]
  - Intestinal obstruction [Recovered/Resolved]
  - Asthenia [Recovering/Resolving]
  - Septic shock [Unknown]
  - Gastrointestinal infection [Recovered/Resolved]
  - Sepsis [Recovered/Resolved]
  - Muscle atrophy [Recovering/Resolving]

NARRATIVE: CASE EVENT DATE: 2018
